FAERS Safety Report 23278584 (Version 1)
Quarter: 2023Q4

REPORT INFORMATION
  Report Type: Spontaneous
  Country: US (occurrence: None)
  Receive Date: 20231208
  Receipt Date: 20231208
  Transmission Date: 20240110
  Serious: Yes (Other)
  Sender: FDA-Public Use
  Company Number: None

PATIENT
  Age: 77 Year
  Sex: Female
  Weight: 75.3 kg

DRUGS (1)
  1. RAMIPRIL [Suspect]
     Active Substance: RAMIPRIL
     Indication: Chronic kidney disease
     Dosage: FREQUENCY : DAILY;?
     Route: 048

REACTIONS (4)
  - Rash [None]
  - Dizziness [None]
  - Nausea [None]
  - Insomnia [None]

NARRATIVE: CASE EVENT DATE: 20170720
